FAERS Safety Report 22369481 (Version 2)
Quarter: 2023Q2

REPORT INFORMATION
  Report Type: Spontaneous
  Country: IT (occurrence: IT)
  Receive Date: 20230526
  Receipt Date: 20230619
  Transmission Date: 20230721
  Serious: Yes (Hospitalization, Other)
  Sender: FDA-Public Use
  Company Number: None

PATIENT
  Age: 73 Year
  Sex: Female

DRUGS (10)
  1. AMLODIPINE BESYLATE\OLMESARTAN MEDOXOMIL [Interacting]
     Active Substance: AMLODIPINE BESYLATE\OLMESARTAN MEDOXOMIL
     Indication: Hypertension
     Dosage: 1 DF, QD (40 MG/5 MG, 1 IN 1 D)
     Route: 048
  2. METFORMIN [Suspect]
     Active Substance: METFORMIN HYDROCHLORIDE
     Indication: Type 2 diabetes mellitus
     Dosage: 850 MG, TID (850 MG (0.33 DAY)
     Route: 048
     Dates: end: 20230430
  3. LASIX [Interacting]
     Active Substance: FUROSEMIDE
     Indication: Product used for unknown indication
     Dosage: 25 MG, QID (25 MG (0.25 DAY))
     Route: 048
  4. TRAZODONE HYDROCHLORIDE [Concomitant]
     Active Substance: TRAZODONE HYDROCHLORIDE
     Indication: Product used for unknown indication
     Dosage: 75 MG, QD
     Route: 048
  5. NITROGLYCERIN [Concomitant]
     Active Substance: NITROGLYCERIN
     Indication: Product used for unknown indication
     Dosage: 5 MG PATCH FROM 08:00 TO 20:00
     Route: 062
  6. ELIQUIS [Concomitant]
     Active Substance: APIXABAN
     Indication: Product used for unknown indication
     Dosage: 5 MG, BID (5 MG X 2/DAY)
     Route: 048
  7. CARBIDOPA\MELEVODOPA [Concomitant]
     Active Substance: CARBIDOPA\MELEVODOPA
     Indication: Parkinson^s disease
     Dosage: 1 DF, TID (25/100 MG 1/2 TABLETS X 3/DAY 37.5 MG/ 150 MG (12.5 MG/50 MG, 3 IN 1 D))
     Route: 048
  8. EZETIMIBE\ROSUVASTATIN ZINC [Concomitant]
     Active Substance: EZETIMIBE\ROSUVASTATIN ZINC
     Indication: Product used for unknown indication
     Dosage: 1 DF, QD (20MG/ 5 MG, 1 IN 1 D)
     Route: 048
  9. SINEMET [Concomitant]
     Active Substance: CARBIDOPA\LEVODOPA
     Indication: Parkinson^s disease
     Dosage: 1 DF, TID (100/25 MG X 3/DAY 300 MG/ 75 MG (100 MG/ 25 MG, 3 IN 1 D))
     Route: 048
  10. CANRENONE [Concomitant]
     Active Substance: CANRENONE
     Indication: Hypertension
     Dosage: 50 MG, QD
     Route: 048

REACTIONS (9)
  - Lactic acidosis [Recovered/Resolved]
  - Labelled drug-drug interaction medication error [Recovered/Resolved]
  - Tachypnoea [Recovered/Resolved]
  - Leukocytosis [Recovered/Resolved]
  - Vomiting [Recovered/Resolved]
  - Anuria [Recovered/Resolved]
  - Acute kidney injury [Recovered/Resolved]
  - Abdominal discomfort [Recovered/Resolved]
  - Constipation [Recovered/Resolved]

NARRATIVE: CASE EVENT DATE: 20230430
